FAERS Safety Report 4541294-1 (Version None)
Quarter: 2004Q4

REPORT INFORMATION
  Report Type: 
  Country: None (occurrence: None)
  Receive Date: 20041228
  Receipt Date: 20041208
  Transmission Date: 20050328
  Serious: Yes (Hospitalization)
  Sender: FDA-Public Use
  Company Number: DSA_25488_2004

PATIENT
  Age: 62 Year
  Sex: Female
  Weight: 97.0698 kg

DRUGS (10)
  1. CARDIZEM CD [Suspect]
     Indication: HYPERTENSION
     Dosage: 180 MG Q DAY PO
     Route: 048
     Dates: start: 19900101, end: 20040501
  2. CARDIZEM LA [Suspect]
     Indication: HYPERTENSION
     Dosage: 360 MG Q DAY PO
     Route: 048
     Dates: start: 20041117, end: 20041213
  3. CARDIZEM CD [Suspect]
     Indication: HYPERTENSION
     Dosage: 360 MG Q DAY PO
     Route: 048
     Dates: start: 20040501, end: 20041116
  4. DIGOXIN [Concomitant]
  5. ACCUPRIL [Concomitant]
  6. HYDROCHLOROTHIAZIDE [Concomitant]
  7. K-DUR [Concomitant]
  8. ADVAIR DISKUS 100/50 [Concomitant]
  9. TRUSOPT [Concomitant]
  10. TRAVATAN [Concomitant]

REACTIONS (7)
  - ATRIAL FIBRILLATION [None]
  - CARDIAC FAILURE CONGESTIVE [None]
  - CARDIAC FLUTTER [None]
  - ELECTROCARDIOGRAM ST SEGMENT ABNORMAL [None]
  - HAEMOGLOBIN DECREASED [None]
  - PALPITATIONS [None]
  - PERICARDIAL EFFUSION [None]
